FAERS Safety Report 19689967 (Version 1)
Quarter: 2021Q3

REPORT INFORMATION
  Report Type: Spontaneous
  Country: US (occurrence: US)
  Receive Date: 20210811
  Receipt Date: 20210811
  Transmission Date: 20211014
  Serious: Yes (Other)
  Sender: FDA-Public Use
  Company Number: None

PATIENT
  Age: 52 Year
  Sex: Female
  Weight: 69.75 kg

DRUGS (7)
  1. VITAMIN B12 [Concomitant]
     Active Substance: CYANOCOBALAMIN
  2. XELJANZ [Concomitant]
     Active Substance: TOFACITINIB CITRATE
  3. SEROQUEL GENERIC [Concomitant]
     Active Substance: QUETIAPINE FUMARATE
  4. VITAMIN D [Concomitant]
     Active Substance: VITAMIN D NOS
  5. FISH OIL [Concomitant]
     Active Substance: FISH OIL
  6. BUPROPION HYDROCHLORIDE XL [Suspect]
     Active Substance: BUPROPION HYDROCHLORIDE
     Indication: MAJOR DEPRESSION
     Dosage: ?          QUANTITY:1 TABLET(S);?
     Route: 048
     Dates: start: 20210726
  7. LOW DOSE ASPIRIN [Concomitant]
     Active Substance: ASPIRIN

REACTIONS (26)
  - Withdrawal syndrome [None]
  - Pyrexia [None]
  - Anxiety [None]
  - Diarrhoea [None]
  - Decreased appetite [None]
  - Condition aggravated [None]
  - Vertigo [None]
  - Sleep disorder [None]
  - Gait disturbance [None]
  - Temperature intolerance [None]
  - Aggression [None]
  - Depression [None]
  - Electric shock sensation [None]
  - Nightmare [None]
  - Tremor [None]
  - Restless legs syndrome [None]
  - Suicidal ideation [None]
  - Product substitution issue [None]
  - Irritability [None]
  - Mania [None]
  - Balance disorder [None]
  - Agitation [None]
  - Pain [None]
  - Hyperhidrosis [None]
  - Hypoaesthesia [None]
  - Paraesthesia [None]

NARRATIVE: CASE EVENT DATE: 20210802
